FAERS Safety Report 18578287 (Version 8)
Quarter: 2021Q2

REPORT INFORMATION
  Report Type: Spontaneous
  Country: US (occurrence: US)
  Receive Date: 20201204
  Receipt Date: 20210614
  Transmission Date: 20210717
  Serious: Yes (Hospitalization, Other)
  Sender: FDA-Public Use
  Company Number: US-GLAXOSMITHKLINE-US2020AMR234547

PATIENT
  Age: 36 Year
  Sex: Female

DRUGS (3)
  1. BENLYSTA [Suspect]
     Active Substance: BELIMUMAB
     Indication: LUPUS NEPHRITIS
     Dosage: UNK
     Dates: start: 2018
  2. BENLYSTA [Suspect]
     Active Substance: BELIMUMAB
  3. BENLYSTA [Suspect]
     Active Substance: BELIMUMAB
     Indication: LUPUS NEPHRITIS
     Dosage: UNK UNK, WE
     Route: 058
     Dates: start: 201201

REACTIONS (23)
  - Nerve injury [Not Recovered/Not Resolved]
  - Weight decreased [Unknown]
  - Nephropathy [Unknown]
  - Systemic lupus erythematosus [Recovered/Resolved]
  - Weight fluctuation [Unknown]
  - Ill-defined disorder [Not Recovered/Not Resolved]
  - Drug ineffective [Unknown]
  - Impaired healing [Not Recovered/Not Resolved]
  - Pain [Not Recovered/Not Resolved]
  - Disturbance in attention [Not Recovered/Not Resolved]
  - Pollakiuria [Recovered/Resolved]
  - Feeling abnormal [Unknown]
  - Blood potassium decreased [Not Recovered/Not Resolved]
  - Muscle strain [Not Recovered/Not Resolved]
  - Injection site pain [Recovered/Resolved]
  - Impaired work ability [Unknown]
  - Depression [Recovering/Resolving]
  - Hospitalisation [Unknown]
  - Ligament operation [Unknown]
  - Ligament rupture [Unknown]
  - Fatigue [Not Recovered/Not Resolved]
  - Blood test [Unknown]
  - Malaise [Not Recovered/Not Resolved]

NARRATIVE: CASE EVENT DATE: 2019
